FAERS Safety Report 10792615 (Version 7)
Quarter: 2015Q2

REPORT INFORMATION
  Report Type: Spontaneous
  Country: US (occurrence: US)
  Receive Date: 20150213
  Receipt Date: 20150617
  Transmission Date: 20150821
  Serious: Yes (Hospitalization, Other)
  Sender: FDA-Public Use
  Company Number: US-009507513-1108USA00966

PATIENT
  Sex: Female
  Weight: 58.96 kg

DRUGS (4)
  1. FOSAMAX [Suspect]
     Active Substance: ALENDRONATE SODIUM
     Dosage: 70 MG, UNK
     Route: 048
     Dates: start: 20010323, end: 20060315
  2. FOSAMAX [Suspect]
     Active Substance: ALENDRONATE SODIUM
     Indication: BONE DENSITY DECREASED
     Dosage: 10 MG, UNK
     Route: 048
     Dates: start: 20000408, end: 20010530
  3. FOSAMAX PLUS D [Suspect]
     Active Substance: ALENDRONATE SODIUM\CHOLECALCIFEROL
     Dosage: 70 MG-2800, UNK
     Route: 048
     Dates: start: 20060627, end: 20090731
  4. ALENDRONATE SODIUM. [Suspect]
     Active Substance: ALENDRONATE SODIUM
     Indication: BONE DENSITY DECREASED
     Dosage: 70 MG, UNK
     Route: 048
     Dates: start: 20080811, end: 20090731

REACTIONS (29)
  - Glucose urine present [Unknown]
  - Hyperlipidaemia [Unknown]
  - Hypertension [Unknown]
  - Haemorrhagic anaemia [Recovering/Resolving]
  - Gastrooesophageal reflux disease [Unknown]
  - Foot fracture [Unknown]
  - Deep vein thrombosis [Unknown]
  - Palpitations [Unknown]
  - Femur fracture [Unknown]
  - Intramedullary rod insertion [Unknown]
  - Acne [Unknown]
  - Urine ketone body present [Unknown]
  - Asthenia [Unknown]
  - Humerus fracture [Unknown]
  - Intervertebral disc degeneration [Unknown]
  - Non-cardiac chest pain [Unknown]
  - Oophorectomy [Unknown]
  - Hypokalaemia [Recovered/Resolved]
  - Bone disorder [Unknown]
  - Osteoporosis [Unknown]
  - Hysterectomy [Unknown]
  - Balance disorder [Unknown]
  - Anxiety [Unknown]
  - Anaemia [Unknown]
  - Conjunctival haemorrhage [Unknown]
  - Osteoarthritis [Unknown]
  - Urinary tract infection [Unknown]
  - Stress urinary incontinence [Unknown]
  - Fatigue [Unknown]

NARRATIVE: CASE EVENT DATE: 20000412
